FAERS Safety Report 5405009-7 (Version None)
Quarter: 2007Q3

REPORT INFORMATION
  Report Type: 
  Country: None (occurrence: None)
  Receive Date: 20070801
  Receipt Date: 20070725
  Transmission Date: 20080115
  Serious: Yes (Other)
  Sender: FDA-Public Use
  Company Number: 2007SP015106

PATIENT
  Age: 48 Year
  Sex: Female

DRUGS (4)
  1. PEG-INTRON [Suspect]
     Indication: HEPATITIS C
     Dates: start: 20040101, end: 20040101
  2. PEG-INTRON [Suspect]
     Indication: HEPATITIS C
     Dates: start: 20070711
  3. REBETOL [Suspect]
     Indication: HEPATITIS C
     Dosage: PO
     Route: 048
     Dates: start: 20040101, end: 20040101
  4. REBETOL [Suspect]
     Indication: HEPATITIS C
     Dosage: PO
     Route: 048
     Dates: start: 20070711

REACTIONS (4)
  - DEHYDRATION [None]
  - MALAISE [None]
  - ORAL INTAKE REDUCED [None]
  - VOMITING [None]
